FAERS Safety Report 5120456-9 (Version None)
Quarter: 2006Q4

REPORT INFORMATION
  Report Type: 
  Country: None (occurrence: None)
  Receive Date: 20061004
  Receipt Date: 20060817
  Transmission Date: 20070319
  Serious: Yes (Life-Threatening, Other)
  Sender: FDA-Public Use
  Company Number: 2006UW16465

PATIENT
  Age: 10841 Day
  Sex: Female
  Weight: 50 kg

DRUGS (3)
  1. SEROQUEL [Suspect]
     Indication: BIPOLAR DISORDER
     Route: 048
     Dates: start: 20060729, end: 20060802
  2. FOSAMAX [Concomitant]
     Indication: OSTEOPENIA
     Route: 048
     Dates: start: 20050101
  3. NASACORT AQ [Concomitant]
     Indication: RHINITIS ALLERGIC
     Route: 045
     Dates: start: 20060628

REACTIONS (2)
  - CONVULSION [None]
  - ENCEPHALOPATHY [None]
